FAERS Safety Report 25272908 (Version 1)
Quarter: 2025Q2

REPORT INFORMATION
  Report Type: Spontaneous
  Country: US (occurrence: US)
  Receive Date: 20250506
  Receipt Date: 20250506
  Transmission Date: 20250717
  Serious: Yes (Other)
  Sender: CIPLA
  Company Number: US-MLMSERVICE-20250417-PI483288-00203-1

PATIENT

DRUGS (2)
  1. LISINOPRIL [Suspect]
     Active Substance: LISINOPRIL
     Indication: Hypertension
     Route: 065
  2. CEFTRIAXONE [Concomitant]
     Active Substance: CEFTRIAXONE
     Indication: Urinary tract infection
     Route: 042

REACTIONS (4)
  - Seizure [Recovered/Resolved]
  - Asthenia [Unknown]
  - Fatigue [Unknown]
  - Confusional state [Unknown]
